FAERS Safety Report 8014938-X (Version None)
Quarter: 2011Q4

REPORT INFORMATION
  Report Type: 
  Country: None (occurrence: None)
  Receive Date: 20111229
  Receipt Date: 20111222
  Transmission Date: 20120403
  Serious: Yes (Other)
  Sender: FDA-Public Use
  Company Number: IL-ROCHE-1025768

PATIENT
  Sex: Male
  Weight: 100 kg

DRUGS (3)
  1. PEGINTERFERON ALFA-2A [Suspect]
     Indication: HEPATITIS C
     Dosage: LAST DOSE PRIRO TO EVENT: 6 OCT 2011
     Route: 058
     Dates: start: 20110405
  2. METHADONE HCL [Concomitant]
  3. COPEGUS [Suspect]
     Indication: HEPATITIS C
     Dosage: LAST DOSE PRIRO TO EVENT: 6 OCT 2011
     Route: 048
     Dates: start: 20110405

REACTIONS (1)
  - OEDEMA PERIPHERAL [None]
